FAERS Safety Report 15825512 (Version 1)
Quarter: 2019Q1

REPORT INFORMATION
  Report Type: Spontaneous
  Country: US (occurrence: US)
  Receive Date: 20190115
  Receipt Date: 20190115
  Transmission Date: 20190417
  Serious: No
  Sender: FDA-Public Use
  Company Number: US-BRISTOL-MYERS SQUIBB COMPANY-BMS-2019-002826

PATIENT
  Sex: Female

DRUGS (1)
  1. OPDIVO [Suspect]
     Active Substance: NIVOLUMAB
     Indication: HEPATIC CANCER
     Dosage: UNK
     Route: 065

REACTIONS (2)
  - Aspartate aminotransferase abnormal [Unknown]
  - Alpha 1 foetoprotein abnormal [Unknown]
